FAERS Safety Report 4766683-1 (Version None)
Quarter: 2005Q3

REPORT INFORMATION
  Report Type: 
  Country: None (occurrence: None)
  Receive Date: 20050909
  Receipt Date: 20050830
  Transmission Date: 20060218
  Serious: Yes (Death, Hospitalization)
  Sender: FDA-Public Use
  Company Number: 05-08-1500

PATIENT
  Age: 45 Year
  Sex: Male

DRUGS (1)
  1. COLCHICINE (COLCHICINE) [Suspect]

REACTIONS (15)
  - BONE MARROW DEPRESSION [None]
  - CARDIAC ARREST [None]
  - COAGULOPATHY [None]
  - DRUG LEVEL INCREASED [None]
  - DYSPNOEA [None]
  - GASTRIC ULCER [None]
  - GENERAL PHYSICAL HEALTH DETERIORATION [None]
  - HEPATIC FAILURE [None]
  - MULTI-ORGAN FAILURE [None]
  - MYOCARDIAL INFARCTION [None]
  - NAUSEA [None]
  - RENAL FAILURE [None]
  - SEPSIS [None]
  - UPPER GASTROINTESTINAL HAEMORRHAGE [None]
  - VENTRICULAR FIBRILLATION [None]
